FAERS Safety Report 15518599 (Version 6)
Quarter: 2019Q2

REPORT INFORMATION
  Report Type: Report from Study
  Country: US (occurrence: US)
  Receive Date: 20181017
  Receipt Date: 20190401
  Transmission Date: 20190711
  Serious: Yes (Hospitalization)
  Sender: FDA-Public Use
  Company Number: US-REGENERON PHARMACEUTICALS, INC.-2018-40253

PATIENT

DRUGS (16)
  1. COLACE [Concomitant]
     Active Substance: DOCUSATE SODIUM
     Indication: CONSTIPATION
     Dosage: 100 MG,AS REQUIRED
     Route: 048
     Dates: start: 20180905
  2. INO-5401 [Suspect]
     Active Substance: INVESTIGATIONAL PRODUCT
     Dosage: EVERY 3 WEEKS TIMES 4 DOSE, THEN EVERY 9 WEEKS UNTIL DISEASE PROGRESSION (1 ML)
     Route: 030
     Dates: start: 20180919, end: 20180919
  3. ZOFRAN [Concomitant]
     Active Substance: ONDANSETRON HYDROCHLORIDE
     Indication: PROPHYLAXIS OF NAUSEA AND VOMITING
     Dosage: 30 MINUTES PRIOR TO A DOSE OF TEMOZOLOMIDE (8 MG,AS REQUIRED)
     Route: 048
     Dates: start: 20180905
  4. ZOFRAN [Concomitant]
     Active Substance: ONDANSETRON HYDROCHLORIDE
     Dosage: 30 MINUTES PRIOR TO A DOSE OF TEMOZOLOMIDE - DEPENDING ON SEVERITY OF NAUSEA
     Route: 048
     Dates: start: 20180905
  5. SULFAMETHOXAZOL W/TRIMETOPRIM [Concomitant]
     Active Substance: SULFAMETHOXAZOLE\TRIMETHOPRIM
     Indication: PROPHYLAXIS
     Dosage: 800-160MG PER TABLET: ONLY SATURDAYS AND SUNDAYS (1 DOSAGE FORMS,2 IN 1 D)
     Route: 048
     Dates: start: 20180908
  6. TEMOZOLOMIDE. [Concomitant]
     Active Substance: TEMOZOLOMIDE
     Indication: GLIOBLASTOMA
     Dosage: UNK
     Dates: start: 20180905, end: 20180924
  7. CEMIPLIMAB [Suspect]
     Active Substance: CEMIPLIMAB
     Indication: GLIOBLASTOMA
     Dosage: (350 MG,EVERY 3 WEEKS UNTIL DISEASE PROGRESSION)
     Route: 042
     Dates: start: 20180828, end: 20180828
  8. INO-5401 [Suspect]
     Active Substance: INVESTIGATIONAL PRODUCT
     Indication: GLIOBLASTOMA
     Dosage: EVERY 3 WEEKS TIMES 4 DOSE, THEN EVERY 9 WEEKS UNTIL DISEASE PROGRESSION (1 ML)
     Route: 030
     Dates: start: 20180828, end: 20180828
  9. INO-9012 [Suspect]
     Active Substance: INVESTIGATIONAL PRODUCT
     Indication: GLIOBLASTOMA
     Dosage: EVERY 3 WEEKS TIMES 4 DOSE, THEN EVERY 9 WEEKS UNTIL DISEASE PROGRESSION (1 ML)
     Route: 030
     Dates: start: 20180828, end: 20180828
  10. INO-9012 [Suspect]
     Active Substance: INVESTIGATIONAL PRODUCT
     Dosage: 1 EVERY 3 WEEKS TIMES 4 DOSE, THEN EVERY 9 WEEKS UNTIL DISEASE PROGRESSION (1 ML)
     Route: 030
     Dates: start: 20180919, end: 20180919
  11. KEPPRA [Suspect]
     Active Substance: LEVETIRACETAM
     Dosage: 2 G, (1 GM,2 IN 1 D)
     Route: 048
  12. AMLODIPINE [Concomitant]
     Active Substance: AMLODIPINE BESYLATE
     Indication: PRODUCT USED FOR UNKNOWN INDICATION
     Dosage: 5 MG (5 MG,1 IN 1 D)
  13. KEPPRA [Suspect]
     Active Substance: LEVETIRACETAM
     Indication: PROPHYLAXIS
     Dosage: 1500 MG (750 MG, 1 IN 1 D
     Route: 048
     Dates: start: 20180828, end: 20181019
  14. TAMSULOSIN [Concomitant]
     Active Substance: TAMSULOSIN
     Indication: PRODUCT USED FOR UNKNOWN INDICATION
     Dosage: 0.4 MG, UNK
     Route: 048
  15. CEMIPLIMAB [Suspect]
     Active Substance: CEMIPLIMAB
     Dosage: (350 MG,EVERY 3 WEEKS UNTIL DISEASE PROGRESSION)
     Route: 042
     Dates: start: 20180919, end: 20180919
  16. RADIOTHERAPY [Concomitant]
     Active Substance: RADIATION THERAPY
     Indication: GLIOBLASTOMA
     Dosage: TOTAL DOSE; 40GY IN 15 FRACTIONS (3 WEEKS); 2.67 GY/DOSE
     Dates: start: 20180904, end: 20180924

REACTIONS (3)
  - Mental status changes [Recovered/Resolved]
  - Encephalitis autoimmune [Recovered/Resolved]
  - Encephalitis autoimmune [Recovered/Resolved]

NARRATIVE: CASE EVENT DATE: 20180924
